FAERS Safety Report 4281684-8 (Version None)
Quarter: 2004Q1

REPORT INFORMATION
  Report Type: 
  Country: None (occurrence: None)
  Receive Date: 20040120
  Receipt Date: 20030805
  Transmission Date: 20041129
  Serious: Yes (Hospitalization)
  Sender: FDA-Public Use
  Company Number: BDI-005345

PATIENT
  Age: 70 Year
  Sex: Male
  Weight: 95 kg

DRUGS (2)
  1. PROHANCE [Suspect]
     Indication: NUCLEAR MAGNETIC RESONANCE IMAGING
     Dosage: 40 MGL ONCE IV
     Route: 042
     Dates: start: 20030805, end: 20030805
  2. PROHANCE [Suspect]
     Indication: RENAL ARTERY STENOSIS
     Dosage: 40 MGL ONCE IV
     Route: 042
     Dates: start: 20030805, end: 20030805

REACTIONS (5)
  - COMA [None]
  - CYANOSIS [None]
  - PALLOR [None]
  - RETCHING [None]
  - YAWNING [None]
